FAERS Safety Report 7832494-3 (Version None)
Quarter: 2011Q4

REPORT INFORMATION
  Report Type: 
  Country: None (occurrence: None)
  Receive Date: 20111024
  Receipt Date: 20111020
  Transmission Date: 20120403
  Serious: Yes (Hospitalization)
  Sender: FDA-Public Use
  Company Number: US-BRISTOL-MYERS SQUIBB COMPANY-14567051

PATIENT
  Age: 52 Year
  Sex: Female
  Weight: 75 kg

DRUGS (1)
  1. CISPLATIN [Suspect]
     Indication: PHARYNGEAL CANCER STAGE UNSPECIFIED
     Dosage: 100 MG/M2 GIVEN ON DAY 1 AND 2 OF RADIATION THERAPY COURSE
     Route: 042
     Dates: start: 20090302, end: 20090302

REACTIONS (8)
  - GINGIVITIS [None]
  - NEUTROPHIL COUNT DECREASED [None]
  - ORAL PAIN [None]
  - WHITE BLOOD CELL COUNT DECREASED [None]
  - FEBRILE NEUTROPENIA [None]
  - DYSPHAGIA [None]
  - DEHYDRATION [None]
  - STOMATITIS [None]
